FAERS Safety Report 8193236-8 (Version None)
Quarter: 2012Q1

REPORT INFORMATION
  Report Type: 
  Country: None (occurrence: None)
  Receive Date: 20120308
  Receipt Date: 20120305
  Transmission Date: 20120608
  Serious: Yes (Death, Hospitalization)
  Sender: FDA-Public Use
  Company Number: US-B.I. PHARMACEUTICALS,INC./RIDGEFIELD-2011-BP-03856BP

PATIENT
  Sex: Female

DRUGS (4)
  1. BONIVA [Concomitant]
     Indication: OSTEOARTHRITIS
  2. PRADAXA [Suspect]
     Indication: ATRIAL FIBRILLATION
     Dosage: 300 MG
     Route: 048
     Dates: start: 20110130, end: 20120113
  3. BONIVA [Concomitant]
     Indication: OSTEOPOROSIS
     Route: 048
  4. PRADAXA [Suspect]
     Indication: HEART VALVE OPERATION

REACTIONS (9)
  - URINARY TRACT INFECTION [None]
  - HEPATIC FAILURE [None]
  - GASTROINTESTINAL PAIN [None]
  - RENAL FAILURE [None]
  - CHEST DISCOMFORT [None]
  - DIARRHOEA [None]
  - HAEMATOCHEZIA [None]
  - COUGH [None]
  - LARGE INTESTINE PERFORATION [None]
